FAERS Safety Report 4726414-8 (Version None)
Quarter: 2005Q3

REPORT INFORMATION
  Report Type: 
  Country: None (occurrence: None)
  Receive Date: 20050726
  Receipt Date: 20050222
  Transmission Date: 20060218
  Serious: No
  Sender: FDA-Public Use
  Company Number: REM_00083_2005

PATIENT
  Age: 48 Year
  Sex: Male
  Weight: 105.2 kg

DRUGS (8)
  1. REMODULIN [Suspect]
     Indication: PULMONARY HYPERTENSION
     Dosage: 38 (PARTIALLY ILLEGABLE)/KG/MIN CONTINUOUS SC
     Route: 058
     Dates: start: 20021202
  2. LORAZEPAM [Concomitant]
  3. FUROSEMIDE [Concomitant]
  4. KLOR-CON [Concomitant]
  5. PROCHLORPERAZINE [Concomitant]
  6. PRILOSEC [Concomitant]
  7. TOPROL-XL [Concomitant]
  8. SPIRONOLACTONE [Concomitant]

REACTIONS (3)
  - LYMPH NODE PAIN [None]
  - NAUSEA [None]
  - PAIN [None]
